FAERS Safety Report 8971568 (Version 1)
Quarter: 2012Q4

REPORT INFORMATION
  Report Type: 
  Country: US (occurrence: US)
  Receive Date: 20121217
  Receipt Date: 20121217
  Transmission Date: 20130627
  Serious: Yes (Other)
  Sender: FDA-Public Use
  Company Number: US-BAYER-2012-130249

PATIENT
  Age: 30 Year
  Sex: Female

DRUGS (2)
  1. MIRENA [Suspect]
     Indication: CONTRACEPTION
     Dosage: 20 mcg/24hr, CONT
     Route: 015
  2. MIRENA [Suspect]
     Indication: CONTRACEPTION
     Dosage: 20 mcg/24hr, CONT
     Route: 015
     Dates: start: 2010, end: 2010

REACTIONS (7)
  - Device dislocation [None]
  - Pregnancy with contraceptive device [None]
  - Menorrhagia [None]
  - Drug ineffective [None]
  - Abdominal pain lower [None]
  - Abdominal discomfort [None]
  - Nausea [None]
